FAERS Safety Report 6677260-X (Version None)
Quarter: 2010Q2

REPORT INFORMATION
  Report Type: 
  Country: None (occurrence: None)
  Receive Date: 20100408
  Receipt Date: 20100408
  Transmission Date: 20101027
  Serious: Yes (Other)
  Sender: FDA-Public Use
  Company Number: None

PATIENT
  Age: 50 Year
  Sex: Female
  Weight: 45.3597 kg

DRUGS (3)
  1. BUPROPION HCL [Suspect]
     Dosage: 150 MG ONCE PO QAM
     Route: 048
     Dates: start: 20100303, end: 20100331
  2. BUPROPION HCL [Suspect]
     Dosage: 300 MG ONCE PO Q AM
     Route: 048
     Dates: start: 20100303, end: 20100331
  3. LIBRIUM [Concomitant]

REACTIONS (2)
  - ANXIETY [None]
  - PRODUCT SUBSTITUTION ISSUE [None]
